FAERS Safety Report 14546098 (Version 3)
Quarter: 2018Q2

REPORT INFORMATION
  Report Type: Spontaneous
  Country: JP (occurrence: JP)
  Receive Date: 20180219
  Receipt Date: 20180402
  Transmission Date: 20180711
  Serious: Yes (Other)
  Sender: FDA-Public Use
  Company Number: JP-009507513-1802JPN000923J

PATIENT
  Sex: Female

DRUGS (3)
  1. ROZEREM [Concomitant]
     Active Substance: RAMELTEON
     Dosage: UNK
     Route: 048
  2. BELSOMRA [Suspect]
     Active Substance: SUVOREXANT
     Dosage: 15 MG, UNK
     Route: 048
     Dates: start: 20170930
  3. BELSOMRA [Suspect]
     Active Substance: SUVOREXANT
     Dosage: 10 MG, UNK
     Route: 048

REACTIONS (11)
  - Dizziness [Not Recovered/Not Resolved]
  - Therapeutic response increased [Unknown]
  - Gastrooesophageal reflux disease [Unknown]
  - Pain [Unknown]
  - Prescribed underdose [Unknown]
  - Helicobacter infection [Unknown]
  - Chronic gastritis [Unknown]
  - Middle insomnia [Unknown]
  - Oesophageal candidiasis [Unknown]
  - Malaise [Not Recovered/Not Resolved]
  - Eructation [Unknown]

NARRATIVE: CASE EVENT DATE: 2017
